FAERS Safety Report 8516055-9 (Version None)
Quarter: 2012Q3

REPORT INFORMATION
  Report Type: 
  Country: None (occurrence: None)
  Receive Date: 20120717
  Receipt Date: 20120515
  Transmission Date: 20120928
  Serious: No
  Sender: FDA-Public Use
  Company Number: US-NOVEN-12US004664

PATIENT
  Sex: Male

DRUGS (2)
  1. VICODIN [Concomitant]
     Indication: BACK PAIN
     Dosage: PRN
     Route: 048
  2. FENTANYL [Suspect]
     Indication: BACK PAIN
     Dosage: 50 UG/HR, Q 3DAYS
     Route: 062
     Dates: start: 20120501

REACTIONS (7)
  - OVERDOSE [None]
  - PRURITUS [None]
  - SOMNOLENCE [None]
  - PRODUCT QUALITY ISSUE [None]
  - HYPERHIDROSIS [None]
  - INSOMNIA [None]
  - DRUG ADMINISTRATION ERROR [None]
